FAERS Safety Report 8559104-4 (Version None)
Quarter: 2012Q3

REPORT INFORMATION
  Report Type: 
  Country: None (occurrence: None)
  Receive Date: 20120802
  Receipt Date: 20120723
  Transmission Date: 20120928
  Serious: No
  Sender: FDA-Public Use
  Company Number: US-BIOGENIDEC-2012BI026851

PATIENT
  Sex: Female

DRUGS (3)
  1. AVONEX [Suspect]
     Indication: MULTIPLE SCLEROSIS
     Route: 030
  2. AVONEX [Suspect]
     Route: 030
     Dates: start: 20070120, end: 20120621
  3. AVONEX [Suspect]
     Route: 030
     Dates: start: 20120621

REACTIONS (5)
  - INJECTION SITE SWELLING [None]
  - ERYTHEMA [None]
  - LOWER EXTREMITY MASS [None]
  - PAIN IN EXTREMITY [None]
  - INJECTION SITE MASS [None]
